FAERS Safety Report 6911981-6 (Version None)
Quarter: 2010Q3

REPORT INFORMATION
  Report Type: 
  Country: None (occurrence: None)
  Receive Date: 20100806
  Receipt Date: 20071227
  Transmission Date: 20110219
  Serious: No
  Sender: FDA-Public Use
  Company Number: US-PFIZER INC-2004237126US

PATIENT
  Age: 78 Year
  Sex: Female

DRUGS (1)
  1. DETROL LA [Suspect]
     Route: 048
     Dates: start: 20040101

REACTIONS (2)
  - DEPRESSED LEVEL OF CONSCIOUSNESS [None]
  - MENTAL IMPAIRMENT [None]
